FAERS Safety Report 15119356 (Version 1)
Quarter: 2018Q3

REPORT INFORMATION
  Report Type: Spontaneous
  Country: US (occurrence: US)
  Receive Date: 20180709
  Receipt Date: 20180709
  Transmission Date: 20181010
  Serious: No
  Sender: FDA-Public Use
  Company Number: US-BIOFRONTERA-000488

PATIENT
  Age: 73 Year
  Sex: Male

DRUGS (1)
  1. AMELUZ [Suspect]
     Active Substance: AMINOLEVULINIC ACID HYDROCHLORIDE
     Indication: ACTINIC KERATOSIS
     Route: 061
     Dates: start: 20180423, end: 20180423

REACTIONS (3)
  - Application site discolouration [Unknown]
  - Off label use [Recovered/Resolved]
  - Application site scar [Unknown]

NARRATIVE: CASE EVENT DATE: 20180423
